FAERS Safety Report 5097075-6 (Version None)
Quarter: 2006Q3

REPORT INFORMATION
  Report Type: 
  Country: None (occurrence: None)
  Receive Date: 20060901
  Receipt Date: 20060821
  Transmission Date: 20061208
  Serious: Yes (Other)
  Sender: FDA-Public Use
  Company Number: 2006103055

PATIENT
  Age: 55 Year
  Sex: Female

DRUGS (2)
  1. EXUBERA [Suspect]
     Indication: DIABETES MELLITUS NON-INSULIN-DEPENDENT
     Dosage: ORAL
     Route: 048
     Dates: start: 20060703, end: 20060806
  2. INSULIN (INSULIN) [Concomitant]

REACTIONS (2)
  - COUGH [None]
  - HAEMOPTYSIS [None]
